FAERS Safety Report 5690893-2 (Version None)
Quarter: 2008Q2

REPORT INFORMATION
  Report Type: 
  Country: None (occurrence: None)
  Receive Date: 20080401
  Receipt Date: 20080327
  Transmission Date: 20081010
  Serious: Yes (Hospitalization, Disabling)
  Sender: FDA-Public Use
  Company Number: FR-ASTRAZENECA-2008CG00074

PATIENT
  Age: 50 Year
  Sex: Male

DRUGS (8)
  1. NEXIUM [Suspect]
     Route: 048
     Dates: start: 20071206, end: 20071210
  2. OMEPRAZOLE [Suspect]
     Route: 048
     Dates: start: 20071101, end: 20071205
  3. INIPOMP [Suspect]
     Indication: OESOPHAGITIS
     Route: 048
     Dates: start: 20070201, end: 20071101
  4. COAPROVEL [Concomitant]
  5. CELIPROLOL [Concomitant]
  6. FLUOXETINE [Concomitant]
  7. PHLOROGLUCINOL [Concomitant]
  8. DOMPERIDONE [Concomitant]

REACTIONS (2)
  - BLOOD CREATINE PHOSPHOKINASE INCREASED [None]
  - MYALGIA [None]
